FAERS Safety Report 8895604 (Version 1)
Quarter: 2012Q4

REPORT INFORMATION
  Report Type: 
  Country: IT (occurrence: IT)
  Receive Date: 20121108
  Receipt Date: 20121108
  Transmission Date: 20130627
  Serious: Yes (Hospitalization)
  Sender: FDA-Public Use
  Company Number: IT-PFIZER INC-2012271552

PATIENT
  Age: 72 Year
  Sex: Female

DRUGS (5)
  1. CISPLATIN [Suspect]
     Indication: ENDOMETRIAL CANCER
     Dosage: 40 mg, weekly
     Dates: start: 20111025, end: 20121025
  2. METFORAL [Concomitant]
  3. IGROTON [Concomitant]
  4. LANOXIN [Concomitant]
  5. TRIPTIZOL [Concomitant]

REACTIONS (4)
  - Asthenia [Unknown]
  - Anaemia [Unknown]
  - Confusional state [Unknown]
  - Platelet count decreased [Unknown]
